FAERS Safety Report 5312868-5 (Version None)
Quarter: 2007Q2

REPORT INFORMATION
  Report Type: 
  Country: None (occurrence: None)
  Receive Date: 20070430
  Receipt Date: 20070418
  Transmission Date: 20071010
  Serious: Yes (Other)
  Sender: FDA-Public Use
  Company Number: US-PFIZER INC-2007031185

PATIENT
  Age: 65 Year
  Sex: Female

DRUGS (2)
  1. GEODON [Suspect]
     Indication: BIPOLAR I DISORDER
  2. LITHIUM CARBONATE [Suspect]
     Dosage: TEXT:UNKNOWN

REACTIONS (1)
  - CONVULSION [None]
